FAERS Safety Report 9255892 (Version 3)
Quarter: 2013Q2

REPORT INFORMATION
  Report Type: Spontaneous
  Country: US (occurrence: US)
  Receive Date: 20130425
  Receipt Date: 20130612
  Transmission Date: 20140414
  Serious: Yes (Life-Threatening, Hospitalization, Disabling)
  Sender: FDA-Public Use
  Company Number: US-GILEAD-2013-0074110

PATIENT
  Age: 69 Year
  Sex: Male

DRUGS (6)
  1. LETAIRIS [Suspect]
     Indication: PULMONARY ARTERIAL HYPERTENSION
     Dosage: 10 MG, QD
     Route: 048
     Dates: start: 20130328, end: 20130406
  2. LETAIRIS [Suspect]
     Dates: start: 20130326
  3. LISINOPRIL [Concomitant]
     Dosage: 5 MG, BID
  4. GABAPENTIN [Concomitant]
     Dosage: 300 MG, QD
  5. WARFARIN [Concomitant]
     Dosage: 6 MG, QD
  6. ROPINIROLE [Concomitant]
     Dosage: 2 MG, QD

REACTIONS (4)
  - Oedema peripheral [Unknown]
  - Dyspnoea [Unknown]
  - Atrial fibrillation [Unknown]
  - Unevaluable event [Unknown]
